FAERS Safety Report 19180759 (Version 1)
Quarter: 2021Q2

REPORT INFORMATION
  Report Type: Spontaneous
  Country: US (occurrence: US)
  Receive Date: 20210426
  Receipt Date: 20210426
  Transmission Date: 20210717
  Serious: Yes (Hospitalization, Other)
  Sender: FDA-Public Use
  Company Number: US-OCULAR THERAPEUTIX-2021OCX00020

PATIENT
  Age: 54 Year
  Sex: Female
  Weight: 63.4 kg

DRUGS (16)
  1. FLUCONAZOLE. [Concomitant]
     Active Substance: FLUCONAZOLE
  2. ALPHAGAN P [Concomitant]
     Active Substance: BRIMONIDINE TARTRATE
     Dosage: UNK, 3X/DAY OU (BOTH EYES)
  3. QNASL [Concomitant]
     Active Substance: BECLOMETHASONE DIPROPIONATE
  4. DEXTENZA [Suspect]
     Active Substance: DEXAMETHASONE
     Dosage: UNK INTO THE RIGHT PUNCTUM
     Dates: start: 20201013
  5. RHOPRESSA [Concomitant]
     Active Substance: NETARSUDIL MESYLATE
     Dosage: UNK 3X/DAY, OU (BOTH EYES)
  6. DORZOLAMIDE [Concomitant]
     Active Substance: DORZOLAMIDE
     Dosage: UNK, 3X/DAY OU (BOTH EYES)
  7. METHENAMINE HIPPURATE. [Concomitant]
     Active Substance: METHENAMINE HIPPURATE
  8. METHOTREXATE. [Concomitant]
     Active Substance: METHOTREXATE
     Dosage: 80 MG, 1X/WEEK EVERY MONDAY
  9. DESLORATADINE. [Concomitant]
     Active Substance: DESLORATADINE
     Dosage: 5 MG, 1X/DAY
     Route: 048
  10. RESTASIS [Concomitant]
     Active Substance: CYCLOSPORINE
     Dosage: UNK, 3X/DAY OU (BOTH EYES)
  11. CALCIUM + D3 [Concomitant]
     Active Substance: CALCIUM\CHOLECALCIFEROL
     Dosage: 1 DF, 1X/DAY
  12. PRILOSEC [Concomitant]
     Active Substance: OMEPRAZOLE MAGNESIUM
  13. MEDROXYPROGESTERONE ACETATE. [Concomitant]
     Active Substance: MEDROXYPROGESTERONE ACETATE
  14. VENTOLIN HFA [Concomitant]
     Active Substance: ALBUTEROL SULFATE
  15. PROLENSA [Concomitant]
     Active Substance: BROMFENAC SODIUM
     Dosage: 1 GTT OS (LEFT EYE)
  16. FOLIC ACID XTRA [Concomitant]

REACTIONS (2)
  - Neurosarcoidosis [Unknown]
  - Retinal artery occlusion [Unknown]

NARRATIVE: CASE EVENT DATE: 2020
